FAERS Safety Report 14724001 (Version 2)
Quarter: 2018Q2

REPORT INFORMATION
  Report Type: Spontaneous
  Country: IN (occurrence: IN)
  Receive Date: 20180405
  Receipt Date: 20180409
  Transmission Date: 20180711
  Serious: Yes (Hospitalization, Other)
  Sender: FDA-Public Use
  Company Number: IN-MYLANLABS-2018M1022231

PATIENT
  Age: 38 Year
  Sex: Male

DRUGS (2)
  1. CLOZAPINE. [Suspect]
     Active Substance: CLOZAPINE
     Indication: SCHIZOAFFECTIVE DISORDER BIPOLAR TYPE
     Dosage: 250 MG, QD
  2. CLOZAPINE. [Suspect]
     Active Substance: CLOZAPINE
     Indication: SUICIDAL IDEATION

REACTIONS (7)
  - Headache [Unknown]
  - Type 2 diabetes mellitus [Recovering/Resolving]
  - C-reactive protein increased [Unknown]
  - Dehydration [Unknown]
  - Blood creatinine increased [Unknown]
  - Pyrexia [Unknown]
  - Diabetic ketoacidosis [Recovered/Resolved]
